FAERS Safety Report 22018481 (Version 1)
Quarter: 2023Q1

REPORT INFORMATION
  Report Type: Spontaneous
  Country: MR (occurrence: MR)
  Receive Date: 20230222
  Receipt Date: 20230222
  Transmission Date: 20230418
  Serious: Yes (Other)
  Sender: FDA-Public Use
  Company Number: MR-SLATE RUN PHARMACEUTICALS-23MR001505

PATIENT

DRUGS (3)
  1. VANCOMYCIN HYDROCHLORIDE [Suspect]
     Active Substance: VANCOMYCIN HYDROCHLORIDE
     Indication: Staphylococcal infection
     Dosage: UNK
  2. AMPICILLIN [Concomitant]
     Active Substance: AMPICILLIN
     Indication: Evidence based treatment
  3. GENTAMICIN [Concomitant]
     Active Substance: GENTAMICIN
     Indication: Evidence based treatment

REACTIONS (3)
  - Cardiac pseudoaneurysm [Recovered/Resolved]
  - Cardiac valve abscess [Recovered/Resolved]
  - Treatment failure [Recovered/Resolved]
